FAERS Safety Report 4461902-3 (Version None)
Quarter: 2004Q3

REPORT INFORMATION
  Report Type: 
  Country: None (occurrence: None)
  Receive Date: 20040929
  Receipt Date: 20031113
  Transmission Date: 20050211
  Serious: No
  Sender: FDA-Public Use
  Company Number: US-GLAXOSMITHKLINE-A0439642A

PATIENT
  Sex: Female

DRUGS (2)
  1. SEREVENT [Suspect]
     Dosage: 2PUFF PER DAY
     Route: 055
     Dates: start: 20031101
  2. ALBUTEROL [Suspect]
     Dosage: 2PUFF PER DAY
     Route: 055
     Dates: start: 20031101

REACTIONS (2)
  - HEART RATE INCREASED [None]
  - RASH ERYTHEMATOUS [None]
